FAERS Safety Report 13395310 (Version 4)
Quarter: 2018Q2

REPORT INFORMATION
  Report Type: Spontaneous
  Country: US (occurrence: US)
  Receive Date: 20170403
  Receipt Date: 20180404
  Transmission Date: 20180711
  Serious: No
  Sender: FDA-Public Use
  Company Number: US-PFIZER INC-2017140538

PATIENT
  Age: 64 Year
  Sex: Female
  Weight: 113 kg

DRUGS (1)
  1. XELJANZ XR [Suspect]
     Active Substance: TOFACITINIB CITRATE
     Indication: RHEUMATOID ARTHRITIS
     Dosage: 11 MG, ONCE A DAY
     Route: 048
     Dates: start: 201702

REACTIONS (6)
  - Rhinorrhoea [Not Recovered/Not Resolved]
  - Nasal congestion [Unknown]
  - Nasopharyngitis [Unknown]
  - Cough [Unknown]
  - Sneezing [Unknown]
  - Pain [Unknown]

NARRATIVE: CASE EVENT DATE: 201702
